FAERS Safety Report 24538480 (Version 1)
Quarter: 2024Q4

REPORT INFORMATION
  Report Type: Report from Study
  Country: GB (occurrence: GB)
  Receive Date: 20241023
  Receipt Date: 20241023
  Transmission Date: 20250115
  Serious: Yes (Hospitalization)
  Sender: ROCHE
  Company Number: XI-ROCHE-3364850

PATIENT
  Sex: Female

DRUGS (6)
  1. TOCILIZUMAB [Suspect]
     Active Substance: TOCILIZUMAB
     Indication: Giant cell arteritis
     Route: 058
     Dates: start: 202302
  2. TOCILIZUMAB [Suspect]
     Active Substance: TOCILIZUMAB
     Route: 058
  3. candesartan 2mg [Concomitant]
  4. bendroflumethiazide 2.5mg [Concomitant]
  5. BACLOFEN [Concomitant]
     Active Substance: BACLOFEN
  6. butec patch 20mg [Concomitant]

REACTIONS (3)
  - Infection [Unknown]
  - Drug delivery system malfunction [Unknown]
  - Inappropriate schedule of product administration [Unknown]
